FAERS Safety Report 21049840 (Version 7)
Quarter: 2024Q4

REPORT INFORMATION
  Report Type: Spontaneous
  Country: US (occurrence: US)
  Receive Date: 20220706
  Receipt Date: 20241230
  Transmission Date: 20250115
  Serious: No
  Sender: PFIZER
  Company Number: US-PFIZER INC-PV202200013520

PATIENT
  Age: 81 Year
  Sex: Female
  Weight: 63.5 kg

DRUGS (7)
  1. IBRANCE [Suspect]
     Active Substance: PALBOCICLIB
     Indication: Neoplasm malignant
     Dosage: 125 MG, 1X/DAY, TAKE FOR THREE WEEKS AND OFF A WEEK
     Route: 048
  2. IBRANCE [Suspect]
     Active Substance: PALBOCICLIB
     Dosage: 100 MG, 1X/DAY (TAKE 1 TABLET ONCE DAILY FOR 21 DAYS AND 7 DAYS)
     Route: 048
  3. ELIQUIS [Concomitant]
     Active Substance: APIXABAN
     Indication: Heart rate irregular
     Dosage: 5 MG, 2X/DAY
     Route: 048
  4. PROPAFENONE [Concomitant]
     Active Substance: PROPAFENONE
     Indication: Heart rate irregular
     Dosage: 150 MG, 3X/DAY
     Route: 048
  5. ANASTROZOLE [Concomitant]
     Active Substance: ANASTROZOLE
     Dosage: 1 MG, 1X/DAY
     Route: 048
  6. METOPROLOL [Concomitant]
     Active Substance: METOPROLOL
     Indication: Heart rate irregular
     Dosage: 25 MG, 1X/DAY
     Route: 048
  7. BIOTIN [Concomitant]
     Active Substance: BIOTIN
     Indication: Heart rate irregular
     Route: 048

REACTIONS (3)
  - Alopecia [Unknown]
  - Dry skin [Unknown]
  - Fatigue [Unknown]
